FAERS Safety Report 4579874-X (Version None)
Quarter: 2005Q1

REPORT INFORMATION
  Report Type: 
  Country: None (occurrence: None)
  Receive Date: 20050203
  Receipt Date: 20040315
  Transmission Date: 20050727
  Serious: No
  Sender: FDA-Public Use
  Company Number: WAES 0403USA01394

PATIENT
  Age: 67 Year
  Sex: Male

DRUGS (5)
  1. ELSPAR [Suspect]
     Indication: ACUTE LYMPHOCYTIC LEUKAEMIA
     Dosage: 12,240 IU/SC
     Route: 058
     Dates: start: 20040301
  2. ELSPAR [Suspect]
     Indication: ACUTE LYMPHOCYTIC LEUKAEMIA
     Dosage: 12,240 IU/SC
     Route: 058
     Dates: start: 20040309
  3. CYCLOPHOSPHAMIDE [Concomitant]
  4. DAUNORUBICIN HCL [Concomitant]
  5. VINCRISTINE SULFATE [Concomitant]

REACTIONS (3)
  - INJECTION SITE ERYTHEMA [None]
  - INJECTION SITE INFLAMMATION [None]
  - MEDICATION ERROR [None]
